FAERS Safety Report 10210744 (Version 2)
Quarter: 2014Q2

REPORT INFORMATION
  Report Type: Spontaneous
  Country: CL (occurrence: CL)
  Receive Date: 20140602
  Receipt Date: 20140605
  Transmission Date: 20141212
  Serious: Yes (Disabling, Other)
  Sender: FDA-Public Use
  Company Number: PHHY2014CL067185

PATIENT
  Sex: Female

DRUGS (3)
  1. TRILEPTAL [Suspect]
     Indication: EPILEPSY
     Dosage: 300 MG, DAILY
     Route: 048
  2. PHENOBARBITAL [Concomitant]
     Dosage: UNK UKN, UNK
  3. CLONAZEPAM [Concomitant]
     Dosage: UNK UKN, UNK

REACTIONS (5)
  - Fall [Recovered/Resolved with Sequelae]
  - Hip fracture [Unknown]
  - Lower limb fracture [Unknown]
  - Upper limb fracture [Unknown]
  - Convulsion [Recovered/Resolved]
